FAERS Safety Report 12583784 (Version 2)
Quarter: 2016Q4

REPORT INFORMATION
  Report Type: Report from Study
  Country: US (occurrence: US)
  Receive Date: 20160722
  Receipt Date: 20161005
  Transmission Date: 20170207
  Serious: Yes (Other)
  Sender: FDA-Public Use
  Company Number: US-SAOL THERAPEUTICS-2016SAO00246

PATIENT
  Sex: Female

DRUGS (23)
  1. MORPHINE [Suspect]
     Active Substance: MORPHINE
     Dosage: 6.303 UNK, UNK
     Route: 037
     Dates: start: 20160414, end: 20160414
  2. BUPIVACAINE. [Suspect]
     Active Substance: BUPIVACAINE
     Dosage: 14.526 UNK, UNK
     Route: 037
     Dates: start: 20160414, end: 20160414
  3. COMPOUNDED BACLOFEN [Suspect]
     Active Substance: BACLOFEN
     Dosage: UNK
     Route: 037
     Dates: start: 2016
  4. BUPIVACAINE. [Suspect]
     Active Substance: BUPIVACAINE
     Dosage: 8.404 UNK, UNK
     Route: 037
     Dates: start: 20160414, end: 20160414
  5. COMPOUNDED BACLOFEN [Suspect]
     Active Substance: BACLOFEN
     Dosage: 315.14 ?G, \DAY
     Route: 037
     Dates: start: 20160414, end: 20160414
  6. COMPOUNDED BACLOFEN [Suspect]
     Active Substance: BACLOFEN
     Dosage: 544.74 UNK, UNK
     Route: 037
     Dates: start: 20160414, end: 20160414
  7. MORPHINE [Suspect]
     Active Substance: MORPHINE
     Dosage: 5.004 MG, \DAY
     Route: 037
     Dates: start: 20160524, end: 20160524
  8. BUPIVACAINE. [Suspect]
     Active Substance: BUPIVACAINE
     Dosage: UNK
     Route: 037
     Dates: start: 2016
  9. CLONIDINE. [Suspect]
     Active Substance: CLONIDINE
     Dosage: 42.02 UNK, UNK
     Route: 037
  10. CLONIDINE. [Suspect]
     Active Substance: CLONIDINE
     Dosage: 72.63 UNK, UNK
     Route: 037
     Dates: start: 20160414, end: 20160414
  11. COMPOUNDED BACLOFEN [Suspect]
     Active Substance: BACLOFEN
     Dosage: 420.2 UNK, UNK
     Dates: start: 20160414, end: 20160414
  12. COMPOUNDED BACLOFEN [Suspect]
     Active Substance: BACLOFEN
     Dosage: 726.3 ?G, \DAY
     Dates: start: 20160414, end: 20160414
  13. CLONIDINE. [Suspect]
     Active Substance: CLONIDINE
     Dosage: 33.36 ?G, \DAY
     Route: 037
     Dates: start: 20160524, end: 20160524
  14. COMPOUNDED BACLOFEN [Suspect]
     Active Substance: BACLOFEN
     Dosage: 333.6 ?G, \DAY
     Dates: start: 20160524, end: 20160524
  15. COMPOUNDED BACLOFEN [Suspect]
     Active Substance: BACLOFEN
     Dosage: 565.4 ?G, \DAY
     Dates: start: 20160524
  16. BUPIVACAINE. [Suspect]
     Active Substance: BUPIVACAINE
     Dosage: 6.672 MG, \DAY
     Route: 037
     Dates: start: 20160524, end: 20160524
  17. CLONIDINE. [Suspect]
     Active Substance: CLONIDINE
     Dosage: 56.54 ?G, UNK
     Route: 037
     Dates: start: 20160524
  18. MORPHINE [Suspect]
     Active Substance: MORPHINE
     Dosage: UNK
     Route: 037
     Dates: start: 2016
  19. MORPHINE [Suspect]
     Active Substance: MORPHINE
     Dosage: 10.895 UNK, UNK
     Route: 037
     Dates: start: 20160414, end: 20160414
  20. MORPHINE [Suspect]
     Active Substance: MORPHINE
     Dosage: 8.480 ?G, \DAY
     Dates: start: 20160524
  21. COMPOUNDED BACLOFEN [Suspect]
     Active Substance: BACLOFEN
     Dosage: UNK
     Dates: start: 2016
  22. BUPIVACAINE. [Suspect]
     Active Substance: BUPIVACAINE
     Dosage: 11.307 UNK, \DAY
     Route: 037
     Dates: start: 20160524
  23. CLONIDINE. [Suspect]
     Active Substance: CLONIDINE
     Dosage: UNK
     Dates: start: 2016

REACTIONS (5)
  - Device kink [Recovered/Resolved]
  - Device dislocation [Recovered/Resolved]
  - Back pain [Recovered/Resolved]
  - Spinal cord neoplasm [Recovered/Resolved]
  - Device failure [Recovered/Resolved]

NARRATIVE: CASE EVENT DATE: 20160525
